FAERS Safety Report 8446703-3 (Version None)
Quarter: 2012Q2

REPORT INFORMATION
  Report Type: 
  Country: None (occurrence: None)
  Receive Date: 20120619
  Receipt Date: 20120611
  Transmission Date: 20120825
  Serious: No
  Sender: FDA-Public Use
  Company Number: US-BIOGENIDEC-2012BI020472

PATIENT
  Sex: Female

DRUGS (4)
  1. TYSABRI [Suspect]
     Indication: MULTIPLE SCLEROSIS
     Route: 042
     Dates: start: 20050222
  2. TYSABRI [Suspect]
     Route: 042
     Dates: start: 20060818, end: 20071023
  3. TYSABRI [Suspect]
     Route: 042
     Dates: start: 20101013, end: 20110630
  4. TYSABRI [Suspect]
     Route: 042
     Dates: start: 20080702, end: 20091209

REACTIONS (4)
  - MALAISE [None]
  - STRESS [None]
  - FATIGUE [None]
  - GASTROENTERITIS VIRAL [None]
